FAERS Safety Report 18582908 (Version 3)
Quarter: 2021Q1

REPORT INFORMATION
  Report Type: Report from Study
  Country: BR (occurrence: BR)
  Receive Date: 20201205
  Receipt Date: 20210308
  Transmission Date: 20210419
  Serious: Yes (Death, Hospitalization, Other)
  Sender: FDA-Public Use
  Company Number: NVSC2020BR324661

PATIENT
  Sex: Male
  Weight: 134 kg

DRUGS (4)
  1. SANDOSTATIN LAR DEPOT [Suspect]
     Active Substance: OCTREOTIDE ACETATE
     Indication: ACROMEGALY
     Dosage: QMO (01 AMPOULE OF 20 MG, IN THE BUTT)
     Route: 065
     Dates: start: 2006
  2. CABERGOLINE. [Concomitant]
     Active Substance: CABERGOLINE
     Indication: PRODUCT USED FOR UNKNOWN INDICATION
     Dosage: UNK, BIW (TWICE A WEEK)
     Route: 065
  3. SANDOSTATIN LAR DEPOT [Suspect]
     Active Substance: OCTREOTIDE ACETATE
  4. SANDOSTATIN LAR DEPOT [Suspect]
     Active Substance: OCTREOTIDE ACETATE
     Dosage: QMO (01 AMPOULE OF 30 MG, IN THE BUTT)
     Route: 065
     Dates: end: 20201013

REACTIONS (8)
  - Obesity [Fatal]
  - Hormone level abnormal [Unknown]
  - Cardiomegaly [Not Recovered/Not Resolved]
  - Pneumonia [Fatal]
  - Septic shock [Fatal]
  - Dementia Alzheimer^s type [Fatal]
  - Myocardial infarction [Recovered/Resolved]
  - Cardiac disorder [Not Recovered/Not Resolved]

NARRATIVE: CASE EVENT DATE: 2012
